FAERS Safety Report 16178169 (Version 5)
Quarter: 2020Q3

REPORT INFORMATION
  Report Type: Report from Study
  Country: BR (occurrence: BR)
  Receive Date: 20190410
  Receipt Date: 20200804
  Transmission Date: 20201102
  Serious: Yes (Hospitalization)
  Sender: FDA-Public Use
  Company Number: BR-BIOGEN-2019BI00688207

PATIENT
  Sex: Female

DRUGS (7)
  1. BOTOX (BOTULINUM TOXIN) [Concomitant]
     Indication: MICTURITION URGENCY
     Route: 065
  2. AVONEX PEN [Suspect]
     Active Substance: INTERFERON BETA-1A
     Route: 050
     Dates: start: 20131109
  3. AVONEX PEN [Suspect]
     Active Substance: INTERFERON BETA-1A
  4. DRAMIN B6 [Concomitant]
     Active Substance: DIMENHYDRINATE\PYRIDOXINE HYDROCHLORIDE
     Indication: BALANCE DISORDER
     Route: 065
  5. AVONEX PEN [Suspect]
     Active Substance: INTERFERON BETA-1A
     Indication: MULTIPLE SCLEROSIS
     Route: 050
     Dates: start: 201311
  6. AVONEX PEN [Suspect]
     Active Substance: INTERFERON BETA-1A
  7. CLONAZEPAM. [Concomitant]
     Active Substance: CLONAZEPAM
     Indication: BALANCE DISORDER
     Route: 065

REACTIONS (16)
  - Tremor [Unknown]
  - Memory impairment [Not Recovered/Not Resolved]
  - Pyrexia [Unknown]
  - Syncope [Unknown]
  - Multiple sclerosis relapse [Recovered/Resolved]
  - Pain [Unknown]
  - Urinary tract infection [Recovered/Resolved]
  - Bladder disorder [Not Recovered/Not Resolved]
  - Hypothermia [Unknown]
  - Haemorrhoids [Not Recovered/Not Resolved]
  - Anal incontinence [Not Recovered/Not Resolved]
  - Decreased immune responsiveness [Unknown]
  - Cataract [Not Recovered/Not Resolved]
  - Polyp [Unknown]
  - Chills [Unknown]
  - Nausea [Unknown]

NARRATIVE: CASE EVENT DATE: 2019
